FAERS Safety Report 10252408 (Version 1)
Quarter: 2014Q2

REPORT INFORMATION
  Report Type: Spontaneous
  Country: CH (occurrence: None)
  Receive Date: 20140619
  Receipt Date: 20140619
  Transmission Date: 20141212
  Serious: Yes (Disabling)
  Sender: FDA-Public Use
  Company Number: 20140329

PATIENT
  Age: 26 Year
  Sex: Female

DRUGS (3)
  1. FERINJECT [Suspect]
     Indication: DEFICIENCY ANAEMIA
     Route: 042
     Dates: start: 20140425, end: 20140425
  2. TRACLEER (BOSENTAN) [Concomitant]
  3. ASPIRIN (ACETYLSALICYLIC ACID) [Concomitant]

REACTIONS (2)
  - Visual field defect [None]
  - Headache [None]
